FAERS Safety Report 20172486 (Version 1)
Quarter: 2021Q4

REPORT INFORMATION
  Report Type: Spontaneous
  Country: CN (occurrence: CN)
  Receive Date: 20211210
  Receipt Date: 20211210
  Transmission Date: 20220303
  Serious: Yes (Hospitalization, Other)
  Sender: FDA-Public Use
  Company Number: CN-009507513-2112CHN002652

PATIENT
  Age: 44 Year
  Sex: Male
  Weight: 50 kg

DRUGS (2)
  1. CILASTATIN SODIUM\IMIPENEM [Suspect]
     Active Substance: CILASTATIN SODIUM\IMIPENEM
     Indication: Pneumonia
     Dosage: 1 G, QID
     Route: 041
     Dates: start: 20211124, end: 20211129
  2. SODIUM CHLORIDE [Concomitant]
     Active Substance: SODIUM CHLORIDE
     Indication: Medication dilution
     Dosage: 100 ML, QID
     Route: 041
     Dates: start: 20211124, end: 20211129

REACTIONS (3)
  - Hepatic encephalopathy [Unknown]
  - Hallucination [Unknown]
  - Disorganised speech [Unknown]

NARRATIVE: CASE EVENT DATE: 20211129
